FAERS Safety Report 12840678 (Version 1)
Quarter: 2016Q4

REPORT INFORMATION
  Report Type: Spontaneous
  Country: US (occurrence: US)
  Receive Date: 20161012
  Receipt Date: 20161012
  Transmission Date: 20170207
  Serious: Yes (Death, Other)
  Sender: FDA-Public Use
  Company Number: US-PFIZER INC-2016472207

PATIENT
  Age: 74 Year
  Sex: Female
  Weight: 57.6 kg

DRUGS (19)
  1. TRAMADOL. [Concomitant]
     Active Substance: TRAMADOL
     Indication: PAIN
     Dosage: 50 MG, 1X/DAY (50MG ONE A DAY AS NEEDED)
     Dates: end: 201609
  2. DIGOXIN. [Concomitant]
     Active Substance: DIGOXIN
     Indication: CARDIAC DISORDER
     Dosage: 0.125 MG, UNK (.125MG ONE A DAY)
     Route: 048
  3. SPIRONOLACTONE. [Concomitant]
     Active Substance: SPIRONOLACTONE
     Indication: FLUID RETENTION
     Dosage: 50 MG, AS NEEDED
  4. MUCINEX [Concomitant]
     Active Substance: GUAIFENESIN
     Indication: RESPIRATORY TRACT CONGESTION
     Dosage: 2 A DAY
  5. ATENOLOL. [Concomitant]
     Active Substance: ATENOLOL
     Indication: BLOOD PRESSURE ABNORMAL
     Dosage: 0.25 MG, 1X/DAY
  6. OXYGEN. [Suspect]
     Active Substance: OXYGEN
     Dosage: 10 LITERS
     Route: 045
  7. FUROSEMIDE. [Concomitant]
     Active Substance: FUROSEMIDE
     Indication: FLUID RETENTION
     Dosage: 20 MG, AS NEEDED
  8. REVATIO [Suspect]
     Active Substance: SILDENAFIL CITRATE
     Dosage: 10 MG, 3X/DAY
     Dates: end: 201609
  9. ALPRAZOLAM. [Concomitant]
     Active Substance: ALPRAZOLAM
     Indication: ANXIETY
     Dosage: 0.25 MG, UNK (.25MG ONE A DAY)
  10. CLONAZEPAM. [Concomitant]
     Active Substance: CLONAZEPAM
     Indication: ANXIETY
     Dosage: 1 MG, UNK (1MG BY MOUTH ONE A DAY)
     Route: 048
  11. LEVOTHYROXINE. [Concomitant]
     Active Substance: LEVOTHYROXINE
     Indication: THYROID DISORDER
     Dosage: 25 MG, UNK (25MG PILL ONE A DAY)
  12. MONTELUKAST [Concomitant]
     Active Substance: MONTELUKAST SODIUM
     Indication: HYPERSENSITIVITY
     Dosage: 10 MG, 1X/DAY
  13. ASPIRIN. [Concomitant]
     Active Substance: ASPIRIN
     Indication: CARDIAC DISORDER
     Dosage: 81 MG, 1X/DAY
  14. PAROXETINE. [Concomitant]
     Active Substance: PAROXETINE
     Indication: MENTAL DISORDER
     Dosage: UNK, 1X/DAY (125MG OR 12.5MG TOOK ONCE A DAY)
  15. REVATIO [Suspect]
     Active Substance: SILDENAFIL CITRATE
     Indication: PULMONARY HYPERTENSION
     Dosage: 20 MG, 3X/DAY
  16. OPSUMIT [Concomitant]
     Active Substance: MACITENTAN
     Indication: PULMONARY HYPERTENSION
     Dosage: 10 MG, 1X/DAY
     Route: 048
     Dates: end: 201609
  17. ALLOPURINOL. [Concomitant]
     Active Substance: ALLOPURINOL
     Indication: GOUT
     Dosage: 100 MG, 1X/DAY
  18. PRAVASTATIN. [Concomitant]
     Active Substance: PRAVASTATIN
     Indication: BLOOD CHOLESTEROL ABNORMAL
     Dosage: 20 MG, 1X/DAY
  19. OXYGEN. [Suspect]
     Active Substance: OXYGEN
     Dosage: 2 TO 3 LITERS

REACTIONS (6)
  - Renal failure [Fatal]
  - Feeding disorder [Not Recovered/Not Resolved]
  - Oxygen saturation decreased [Fatal]
  - Fall [Unknown]
  - Hypoxia [Fatal]
  - Epistaxis [Unknown]

NARRATIVE: CASE EVENT DATE: 2016
